FAERS Safety Report 13406038 (Version 1)
Quarter: 2017Q2

REPORT INFORMATION
  Report Type: Spontaneous
  Country: US (occurrence: US)
  Receive Date: 20170405
  Receipt Date: 20170405
  Transmission Date: 20170830
  Serious: No
  Sender: FDA-Public Use
  Company Number: US-009507513-1703USA004927

PATIENT
  Age: 66 Year
  Sex: Male

DRUGS (14)
  1. SINEMET [Suspect]
     Active Substance: CARBIDOPA\LEVODOPA
     Dosage: 1/4 TABLET, TID
     Route: 048
     Dates: start: 201307, end: 201407
  2. SINEMET CR [Suspect]
     Active Substance: CARBIDOPA\LEVODOPA
     Dosage: 1 TABLET, HS
     Route: 048
     Dates: end: 201306
  3. PRAMIPEXOLE. [Concomitant]
     Active Substance: PRAMIPEXOLE
     Dosage: 1 MG, TID
     Dates: start: 201407, end: 201408
  4. ENTACAPONE. [Suspect]
     Active Substance: ENTACAPONE
     Indication: PARKINSON^S DISEASE
     Dosage: 200 MG, 6 X/DAY
     Dates: end: 201306
  5. SELEGILINE [Concomitant]
     Active Substance: SELEGILINE
     Dosage: 5 MG, BID
     Dates: start: 201410
  6. PRAMIPEXOLE. [Concomitant]
     Active Substance: PRAMIPEXOLE
     Dosage: 1.5 MG, TID
     Dates: start: 201410
  7. CLONAZEPAM. [Concomitant]
     Active Substance: CLONAZEPAM
     Dosage: 1 MG, HS
     Dates: end: 201408
  8. CLONAZEPAM. [Concomitant]
     Active Substance: CLONAZEPAM
     Dosage: 1 MG, HS
     Dates: start: 201410
  9. SINEMET [Suspect]
     Active Substance: CARBIDOPA\LEVODOPA
     Indication: PARKINSON^S DISEASE
     Dosage: 0.5 DF, 6 X/DAY
     Route: 048
     Dates: end: 201306
  10. SINEMET [Suspect]
     Active Substance: CARBIDOPA\LEVODOPA
     Dosage: 0.5 DF, QID
     Route: 048
     Dates: start: 201306, end: 201307
  11. SINEMET CR [Suspect]
     Active Substance: CARBIDOPA\LEVODOPA
     Indication: PARKINSON^S DISEASE
     Dosage: 0.5 TABLET, 5 TIMES PER DAY
     Route: 048
     Dates: end: 201306
  12. SELEGILINE [Concomitant]
     Active Substance: SELEGILINE
     Dosage: 5 MG, BID
     Dates: end: 201407
  13. AMANTADINE. [Concomitant]
     Active Substance: AMANTADINE HYDROCHLORIDE
     Dosage: 100 MG, QID
  14. PRAMIPEXOLE. [Concomitant]
     Active Substance: PRAMIPEXOLE
     Dosage: 1.5 MG, TID
     Dates: end: 201407

REACTIONS (1)
  - Dyskinesia [Unknown]

NARRATIVE: CASE EVENT DATE: 2013
